FAERS Safety Report 5626181-X (Version None)
Quarter: 2008Q1

REPORT INFORMATION
  Report Type: 
  Country: None (occurrence: None)
  Receive Date: 20080213
  Receipt Date: 20080213
  Transmission Date: 20080703
  Serious: Yes (Disabling)
  Sender: FDA-Public Use
  Company Number: None

PATIENT
  Sex: Female
  Weight: 62.5964 kg

DRUGS (1)
  1. ZOCOR [Suspect]
     Indication: BLOOD CHOLESTEROL ABNORMAL
     Dosage: * 40 MG 1/2 TAB DAILY ORAL
     Route: 048
     Dates: start: 19950101, end: 20070101

REACTIONS (1)
  - UNEVALUABLE EVENT [None]
